FAERS Safety Report 9501530 (Version 3)
Quarter: 2013Q3

REPORT INFORMATION
  Report Type: Spontaneous
  Country: PT (occurrence: PT)
  Receive Date: 20130905
  Receipt Date: 20130917
  Transmission Date: 20140515
  Serious: Yes (Other)
  Sender: FDA-Public Use
  Company Number: PT-TEVA-428668ISR

PATIENT
  Age: 43 Year
  Sex: Male
  Weight: 84 kg

DRUGS (2)
  1. CISPLATIN TEVA [Suspect]
     Indication: PANCREATIC NEOPLASM
     Route: 041
     Dates: start: 20130305, end: 20130806
  2. CLORETO DE SODIO [Concomitant]
     Indication: PANCREATIC CARCINOMA
     Route: 041
     Dates: start: 20130806, end: 20130806

REACTIONS (4)
  - Pain [Recovered/Resolved]
  - Face oedema [Recovered/Resolved]
  - Erythema [Recovered/Resolved]
  - Off label use [Recovered/Resolved]
